FAERS Safety Report 5949130-3 (Version None)
Quarter: 2008Q4

REPORT INFORMATION
  Report Type: 
  Country: None (occurrence: None)
  Receive Date: 20081111
  Receipt Date: 20081105
  Transmission Date: 20090506
  Serious: Yes (Hospitalization)
  Sender: FDA-Public Use
  Company Number: US-B.I. PHARMACEUTICALS,INC./RIDGEFIELD-2008-BP-16873BP

PATIENT
  Sex: Female

DRUGS (6)
  1. SPIRIVA [Suspect]
     Indication: CHRONIC OBSTRUCTIVE PULMONARY DISEASE
     Dosage: 18MCG
     Route: 055
     Dates: start: 20060301, end: 20081025
  2. MAXAIR [Concomitant]
     Route: 055
     Dates: start: 20070101
  3. ENULOSE [Concomitant]
     Indication: CONSTIPATION
  4. ATENOLOL [Concomitant]
     Indication: HYPERTENSION
  5. LORAZEPAM [Concomitant]
     Indication: SLEEP DISORDER
  6. PHENERGAN HCL [Concomitant]
     Indication: NAUSEA
     Dates: start: 20070101

REACTIONS (5)
  - AORTIC ANEURYSM [None]
  - DRUG INEFFECTIVE [None]
  - DYSPNOEA [None]
  - HEPATIC NEOPLASM MALIGNANT [None]
  - LUNG NEOPLASM MALIGNANT [None]
